FAERS Safety Report 6595438-0 (Version None)
Quarter: 2010Q1

REPORT INFORMATION
  Report Type: 
  Country: None (occurrence: None)
  Receive Date: 20100223
  Receipt Date: 20100213
  Transmission Date: 20100710
  Serious: No
  Sender: FDA-Public Use
  Company Number: US-B.I. PHARMACEUTICALS,INC./RIDGEFIELD-2010-BP-01955BP

PATIENT
  Age: 29 Year
  Sex: Male

DRUGS (2)
  1. ZANTAC 75 [Suspect]
     Indication: DYSPEPSIA
     Dosage: 150 MG
     Route: 048
     Dates: start: 20080101, end: 20080101
  2. ZANTAC 75 [Suspect]
     Dosage: 150 MG
     Route: 048
     Dates: start: 20100212, end: 20100213

REACTIONS (5)
  - DRUG INEFFECTIVE [None]
  - FAECES DISCOLOURED [None]
  - MUSCULOSKELETAL PAIN [None]
  - NECK PAIN [None]
  - ULCER [None]
